FAERS Safety Report 4418073-9 (Version None)
Quarter: 2004Q3

REPORT INFORMATION
  Report Type: 
  Country: None (occurrence: None)
  Receive Date: 20040730
  Receipt Date: 20040722
  Transmission Date: 20050211
  Serious: Yes (Hospitalization)
  Sender: FDA-Public Use
  Company Number: 2004UW15480

PATIENT
  Age: 69 Year
  Sex: Male

DRUGS (12)
  1. ELAVIL [Suspect]
     Indication: DEPRESSION
     Dosage: 10 MG HS PO
     Route: 048
     Dates: start: 20040608, end: 20040622
  2. ALFACALCIDOL [Concomitant]
  3. ALFACALCIDOL [Concomitant]
  4. AMOXICILLIN [Concomitant]
  5. ATORVASTATIN [Concomitant]
  6. NO MATCH [Concomitant]
  7. DARBEPOETIN ALFA [Concomitant]
  8. FUROSEMIDE [Concomitant]
  9. BIPHASIC ISOPHANE [Concomitant]
  10. LISINOPRIL [Concomitant]
  11. NITRAZEPAM [Concomitant]
  12. QUININE [Concomitant]

REACTIONS (4)
  - AGGRESSION [None]
  - AGITATION [None]
  - CONFUSIONAL STATE [None]
  - PSYCHOTIC DISORDER [None]
